FAERS Safety Report 10335791 (Version 3)
Quarter: 2015Q1

REPORT INFORMATION
  Report Type: Spontaneous
  Country: US (occurrence: US)
  Receive Date: 20140723
  Receipt Date: 20150119
  Transmission Date: 20150720
  Serious: No
  Sender: FDA-Public Use
  Company Number: US-UNITED THERAPEUTICS-UTC-048279

PATIENT
  Sex: Female

DRUGS (2)
  1. ADCIRCA [Concomitant]
     Active Substance: TADALAFIL
  2. REMODULIN [Suspect]
     Active Substance: TREPROSTINIL
     Dosage: 0.075 ?G/KG/MIN, CONTINUING
     Route: 058
     Dates: start: 20131223

REACTIONS (3)
  - Infusion site pain [Unknown]
  - Thrombosis in device [Unknown]
  - Infusion site erythema [Unknown]
